FAERS Safety Report 8334140-1 (Version None)
Quarter: 2012Q2

REPORT INFORMATION
  Report Type: 
  Country: None (occurrence: None)
  Receive Date: 20120503
  Receipt Date: 20110509
  Transmission Date: 20120825
  Serious: No
  Sender: FDA-Public Use
  Company Number: US-TEVA-2011001000

PATIENT
  Age: 56 Year
  Sex: Male
  Weight: 114.41 kg

DRUGS (3)
  1. NUVIGIL [Suspect]
     Indication: SOMNOLENCE
     Dosage: 150 MILLIGRAM;
     Route: 048
  2. NUVIGIL [Suspect]
     Dosage: 300 MILLIGRAM;
     Route: 048
  3. LUNESTA [Concomitant]
     Route: 048

REACTIONS (1)
  - DRUG TOLERANCE [None]
